FAERS Safety Report 8493844-0 (Version None)
Quarter: 2012Q3

REPORT INFORMATION
  Report Type: 
  Country: None (occurrence: None)
  Receive Date: 20120706
  Receipt Date: 20120629
  Transmission Date: 20120928
  Serious: Yes (Other)
  Sender: FDA-Public Use
  Company Number: PHHY2012ES056182

PATIENT
  Age: 69 Year
  Sex: Female

DRUGS (13)
  1. PYRAZINAMIDE [Interacting]
     Indication: TUBERCULOSIS
  2. GANCICLOVIR [Concomitant]
     Route: 042
  3. ETHAMBUTOL HYDROCHLORIDE [Interacting]
     Indication: TUBERCULOSIS
  4. ISONIAZID [Interacting]
     Indication: TUBERCULOSIS
  5. CASPOFUNGIN ACETATE [Interacting]
  6. LEVOFLOXACIN [Concomitant]
  7. TACROLIMUS [Interacting]
     Indication: IMMUNOSUPPRESSION
  8. MYCOPHENOLATE MOFETIL [Suspect]
  9. IMMUNE GLOBULIN NOS [Concomitant]
  10. STEROIDS NOS [Interacting]
     Indication: IMMUNOSUPPRESSION
  11. CEFUROXIME [Concomitant]
     Route: 042
  12. COTRIM [Concomitant]
     Route: 048
  13. PLASMAPHERESIS BLOOD-PACK SYSTEM INFUSION [Concomitant]

REACTIONS (8)
  - BLOOD BILIRUBIN INCREASED [None]
  - DRUG LEVEL DECREASED [None]
  - GAMMA-GLUTAMYLTRANSFERASE [None]
  - DRUG INTERACTION [None]
  - HEPATOTOXICITY [None]
  - ALANINE AMINOTRANSFERASE INCREASED [None]
  - ASPARTATE AMINOTRANSFERASE INCREASED [None]
  - BLOOD ALKALINE PHOSPHATASE INCREASED [None]
